FAERS Safety Report 15898420 (Version 1)
Quarter: 2019Q1

REPORT INFORMATION
  Report Type: Spontaneous
  Country: US (occurrence: US)
  Receive Date: 20190201
  Receipt Date: 20190201
  Transmission Date: 20190417
  Serious: Yes (Other)
  Sender: FDA-Public Use
  Company Number: US-KADMON PHARMACEUTICALS, LLC-KAD-201806-01328

PATIENT
  Sex: Male

DRUGS (4)
  1. INTERFERON [Suspect]
     Active Substance: INTERFERON
     Route: 048
  2. RIBAVIRIN. [Suspect]
     Active Substance: RIBAVIRIN
     Route: 048
  3. INTERFERON [Suspect]
     Active Substance: INTERFERON
     Route: 048
  4. RIBAVIRIN. [Suspect]
     Active Substance: RIBAVIRIN
     Route: 048

REACTIONS (7)
  - Arthralgia [Unknown]
  - Hepatitis C [Unknown]
  - Viral test positive [Unknown]
  - Therapeutic response unexpected [Unknown]
  - Emotional disorder [Unknown]
  - Fatigue [Unknown]
  - Suicidal ideation [Unknown]
